FAERS Safety Report 18428882 (Version 3)
Quarter: 2020Q4

REPORT INFORMATION
  Report Type: Spontaneous
  Country: US (occurrence: US)
  Receive Date: 20201026
  Receipt Date: 20201228
  Transmission Date: 20210114
  Serious: Yes (Other)
  Sender: FDA-Public Use
  Company Number: NVSC2020US287018

PATIENT
  Age: 64 Year
  Sex: Male
  Weight: 71.67 kg

DRUGS (1)
  1. XIIDRA [Suspect]
     Active Substance: LIFITEGRAST
     Indication: DRY EYE
     Dosage: 1 DRP, BID
     Route: 047
     Dates: start: 20201201, end: 20201217

REACTIONS (2)
  - Dysgeusia [Unknown]
  - Blepharitis [Recovering/Resolving]

NARRATIVE: CASE EVENT DATE: 20201217
